FAERS Safety Report 8167514-2 (Version None)
Quarter: 2012Q1

REPORT INFORMATION
  Report Type: 
  Country: None (occurrence: None)
  Receive Date: 20120227
  Receipt Date: 20120221
  Transmission Date: 20120608
  Serious: Yes (Hospitalization, Congenital Anomaly, Other)
  Sender: FDA-Public Use
  Company Number: US-PFIZER INC-2011158547

PATIENT
  Sex: Female
  Weight: 3 kg

DRUGS (2)
  1. EFFEXOR XR [Suspect]
     Dosage: 37.5 MG, UNK
     Route: 064
  2. EFFEXOR XR [Suspect]
     Dosage: 150 MG, UNK
     Route: 064

REACTIONS (10)
  - MATERNAL EXPOSURE TIMING UNSPECIFIED [None]
  - PULMONARY VALVE STENOSIS [None]
  - TALIPES [None]
  - JAUNDICE [None]
  - CARDIAC MURMUR [None]
  - NEONATAL RESPIRATORY DISTRESS SYNDROME [None]
  - RIGHT ATRIAL DILATATION [None]
  - ATRIAL SEPTAL DEFECT [None]
  - ANOMALOUS PULMONARY VENOUS CONNECTION [None]
  - RIGHT VENTRICULAR HYPERTROPHY [None]
